FAERS Safety Report 8080937 (Version 2)
Quarter: 2014Q1

REPORT INFORMATION
  Report Type: Spontaneous
  Country: US (occurrence: US)
  Receive Date: 20110808
  Receipt Date: 20140327
  Transmission Date: 20141002
  Serious: Yes (Other)
  Sender: FDA-Public Use
  Company Number: US-ASTRAZENECA-2009SE10759

PATIENT
  Age: 85 Year
  Sex: Female

DRUGS (4)
  1. SYMBICORT PMDI [Suspect]
     Dosage: UNKNOWN
     Route: 055
  2. NEXIUM [Suspect]
     Route: 048
  3. TOPROL [Suspect]
     Route: 048
  4. ZOMIG [Suspect]
     Route: 048

REACTIONS (7)
  - Upper limb fracture [Unknown]
  - Laryngitis [Unknown]
  - Amnesia [Unknown]
  - Nerve compression [Unknown]
  - Wrong patient received medication [Unknown]
  - Drug dose omission [Not Recovered/Not Resolved]
  - Off label use [Unknown]
